FAERS Safety Report 9827621 (Version 2)
Quarter: 2014Q1

REPORT INFORMATION
  Report Type: Spontaneous
  Country: ZA (occurrence: ZA)
  Receive Date: 20140117
  Receipt Date: 20140117
  Transmission Date: 20141002
  Serious: Yes (Life-Threatening)
  Sender: FDA-Public Use
  Company Number: ZA-PFIZER INC-2014012511

PATIENT
  Age: 21 Year
  Sex: Female

DRUGS (3)
  1. HYDROCORTISONE SODIUM SUCCINATE [Suspect]
  2. SALBUTAMOL [Concomitant]
     Indication: ASTHMA
  3. THEOPHYLLINE [Concomitant]
     Indication: ASTHMA

REACTIONS (3)
  - Respiratory arrest [Recovering/Resolving]
  - Anaphylactic reaction [Recovering/Resolving]
  - Bronchospasm [Recovering/Resolving]
